FAERS Safety Report 4855798-5 (Version None)
Quarter: 2005Q4

REPORT INFORMATION
  Report Type: 
  Country: None (occurrence: None)
  Receive Date: 20051216
  Receipt Date: 20050203
  Transmission Date: 20060501
  Serious: Yes (Hospitalization)
  Sender: FDA-Public Use
  Company Number: US-MERCK-0502USA00529

PATIENT
  Age: 62 Year
  Sex: Male
  Weight: 86 kg

DRUGS (6)
  1. VIOXX [Suspect]
     Indication: INTERVERTEBRAL DISC DEGENERATION
     Route: 048
     Dates: start: 20001116, end: 20030501
  2. VIOXX [Suspect]
     Indication: OSTEOARTHRITIS
     Route: 048
     Dates: start: 20001116, end: 20030501
  3. TYLENOL [Concomitant]
     Route: 065
  4. ASPIRIN [Concomitant]
     Route: 048
  5. NEXIUM [Concomitant]
     Route: 048
  6. VERAPAMIL [Concomitant]
     Route: 065

REACTIONS (11)
  - CORONARY ARTERY DISEASE [None]
  - ERECTILE DYSFUNCTION [None]
  - HYPERLIPIDAEMIA [None]
  - INTERVERTEBRAL DISC DEGENERATION [None]
  - ISCHAEMIC CARDIOMYOPATHY [None]
  - MYOCARDIAL INFARCTION [None]
  - PAINFUL ERECTION [None]
  - PENIS DEVIATION [None]
  - SINUS CONGESTION [None]
  - SKIN LACERATION [None]
  - VENTRICULAR DYSFUNCTION [None]
